FAERS Safety Report 10418952 (Version 1)
Quarter: 2014Q2

REPORT INFORMATION
  Report Type: Spontaneous
  Country: US (occurrence: None)
  Receive Date: 20140625
  Receipt Date: 20140625
  Transmission Date: 20141212
  Serious: No
  Sender: FDA-Public Use
  Company Number: A-US2014-95585

PATIENT
  Age: 62 Year
  Sex: Male

DRUGS (1)
  1. OPSUMIT (MACITENTAN) [Suspect]
     Indication: PRODUCT USED FOR UNKNOWN INDICATION
     Route: 048
     Dates: start: 20131121

REACTIONS (4)
  - Drug dose omission [None]
  - Oedema [None]
  - Oedema peripheral [None]
  - Pericardial effusion [None]
